FAERS Safety Report 7298496-3 (Version None)
Quarter: 2011Q1

REPORT INFORMATION
  Report Type: 
  Country: None (occurrence: None)
  Receive Date: 20110217
  Receipt Date: 20110208
  Transmission Date: 20110831
  Serious: Yes (Hospitalization)
  Sender: FDA-Public Use
  Company Number: FR-BRISTOL-MYERS SQUIBB COMPANY-15551963

PATIENT
  Age: 54 Year
  Sex: Male

DRUGS (11)
  1. VICTOZA [Suspect]
     Indication: TYPE 2 DIABETES MELLITUS
     Dosage: 0.6MG 15MAY10-APPROX 15D 1.2MG UNK-18JAN11(APPROX 15D) 1.8MG 18JAN11-ONG SOLN FOR INJ
     Route: 058
     Dates: start: 20100515
  2. GLUCOPHAGE [Suspect]
     Indication: TYPE 2 DIABETES MELLITUS
     Dosage: LONG TERM-ONG
     Route: 048
  3. CARDENSIEL [Suspect]
     Indication: HYPERTENSION
     Dosage: OLD-ONG 10MG TABS
     Route: 048
  4. TOPALGIC [Suspect]
     Indication: PAIN
     Dosage: OLD-ONG 100MG MODIFIED RELEASE TABS
     Route: 048
  5. TAHOR [Concomitant]
     Dosage: 40MG TABS UNK-ONG
     Route: 048
  6. IKOREL [Concomitant]
     Dosage: 20MG UNK-ONG
  7. ACTOS [Suspect]
     Indication: TYPE 2 DIABETES MELLITUS
     Dosage: OLD-ONG
     Route: 048
  8. TRIATEC [Suspect]
     Indication: HYPERTENSION
     Dosage: OLD-ONG
     Route: 048
  9. ASPIRIN [Concomitant]
     Dosage: KARDEGIC POWDER FOR ORAL SOLN
     Route: 048
  10. AMLOR [Suspect]
     Indication: HYPERTENSION
     Dosage: OLD-ONG 5MG
     Route: 048
  11. VASTAREL [Suspect]
     Indication: HYPERTENSION
     Dosage: VASTAREL 35MG OLD-ONG
     Route: 048

REACTIONS (4)
  - MALAISE [None]
  - VISUAL IMPAIRMENT [None]
  - MUSCULAR WEAKNESS [None]
  - FALL [None]
